FAERS Safety Report 11844564 (Version 1)
Quarter: 2015Q4

REPORT INFORMATION
  Report Type: Spontaneous
  Country: US (occurrence: US)
  Receive Date: 20151217
  Receipt Date: 20151217
  Transmission Date: 20160305
  Serious: No
  Sender: FDA-Public Use
  Company Number: US-ABBVIE-15P-163-1351956-00

PATIENT
  Sex: Female

DRUGS (1)
  1. PROGESTERONE. [Suspect]
     Active Substance: PROGESTERONE
     Indication: PRODUCT USED FOR UNKNOWN INDICATION
     Route: 048

REACTIONS (6)
  - Erythema [Unknown]
  - Dysphonia [Not Recovered/Not Resolved]
  - Throat tightness [Recovering/Resolving]
  - Rash pruritic [Recovering/Resolving]
  - Rash [Unknown]
  - Cough [Not Recovered/Not Resolved]
